FAERS Safety Report 20206149 (Version 1)
Quarter: 2021Q4

REPORT INFORMATION
  Report Type: Report from Study
  Country: CA (occurrence: CA)
  Receive Date: 20211220
  Receipt Date: 20211220
  Transmission Date: 20220304
  Serious: Yes (Hospitalization, Other)
  Sender: FDA-Public Use
  Company Number: CA-ALXN-A202101611AA

PATIENT
  Age: 63 Year
  Sex: Male

DRUGS (4)
  1. SOLIRIS [Suspect]
     Active Substance: ECULIZUMAB
     Indication: Myasthenia gravis
     Dosage: 900 MG, QW (FOR FIRST 4 WEEKS, THEN 1200 MG FOR 5TH DOSE 7 DAYS LATER)
     Route: 042
     Dates: start: 20190507, end: 20190603
  2. SOLIRIS [Suspect]
     Active Substance: ECULIZUMAB
     Dosage: 1200 MG, Q2W
     Route: 042
     Dates: start: 20190617
  3. PREDNISONE [Concomitant]
     Active Substance: PREDNISONE
     Indication: Product used for unknown indication
     Dosage: 10
     Route: 065
  4. IMURAN                             /00001501/ [Concomitant]
     Indication: Product used for unknown indication
     Dosage: 100 (UNK), BID
     Route: 065

REACTIONS (30)
  - Pyelonephritis [Unknown]
  - Back injury [Not Recovered/Not Resolved]
  - Fall [Not Recovered/Not Resolved]
  - Oesophageal candidiasis [Unknown]
  - Inflammation [Unknown]
  - Kidney infection [Not Recovered/Not Resolved]
  - Spinal fracture [Recovering/Resolving]
  - Myasthenia gravis [Not Recovered/Not Resolved]
  - Staphylococcal infection [Unknown]
  - Infection [Unknown]
  - Klebsiella infection [Unknown]
  - Joint instability [Not Recovered/Not Resolved]
  - Blood pressure increased [Recovered/Resolved]
  - Abdominal discomfort [Recovered/Resolved]
  - Muscular weakness [Not Recovered/Not Resolved]
  - Heart rate increased [Not Recovered/Not Resolved]
  - Peripheral swelling [Recovering/Resolving]
  - Musculoskeletal chest pain [Recovering/Resolving]
  - Foot fracture [Recovering/Resolving]
  - Rib fracture [Recovering/Resolving]
  - Lower limb fracture [Recovering/Resolving]
  - Accident [Unknown]
  - Pain [Not Recovered/Not Resolved]
  - Candida infection [Unknown]
  - Dysphonia [Not Recovered/Not Resolved]
  - Back pain [Not Recovered/Not Resolved]
  - Arthralgia [Recovering/Resolving]
  - Joint swelling [Recovering/Resolving]
  - Nausea [Recovering/Resolving]
  - Tremor [Not Recovered/Not Resolved]

NARRATIVE: CASE EVENT DATE: 20210101
